FAERS Safety Report 8841709 (Version 1)
Quarter: 2012Q4

REPORT INFORMATION
  Report Type: Spontaneous
  Country: US (occurrence: None)
  Receive Date: 20121011
  Receipt Date: 20121011
  Transmission Date: 20130627
  Serious: Yes (Hospitalization, Other)
  Sender: FDA-Public Use
  Company Number: AUR-APL-2012-04286

PATIENT
  Age: 67 Year
  Sex: Female

DRUGS (9)
  1. SIMVASTATIN (SIMVASTATIN) [Suspect]
     Indication: DRUG USE FOR UNKNOWN INDICATION
  2. INSULIN GLARGINE (INSULIN GLARGINE) [Concomitant]
  3. INSULIN ASPART (INSULIN ASPART) [Concomitant]
  4. CARVEDILOL (CARVEDILOL) [Concomitant]
  5. ACETYLSALICYLIC ACID (ACETYLSALICYLIC ACID) [Concomitant]
  6. WARFARIN (WARFARIN) [Concomitant]
  7. FUROSEMIDE (FUROSEMIDE) [Concomitant]
  8. MULTIVITAMINS (MULTIVITAMINS) [Concomitant]
  9. CALCIUM WITH VITAMIND D (CALCIUM D3 //01483701/) [Concomitant]

REACTIONS (3)
  - Rhabdomyolysis [None]
  - Hepatitis [None]
  - Food interaction [None]
